FAERS Safety Report 4521298-5 (Version None)
Quarter: 2004Q4

REPORT INFORMATION
  Report Type: 
  Country: None (occurrence: None)
  Receive Date: 20041208
  Receipt Date: 20041201
  Transmission Date: 20050328
  Serious: Yes (Other)
  Sender: FDA-Public Use
  Company Number: PHBS2004US16083

PATIENT
  Age: 50 Year
  Sex: Male

DRUGS (2)
  1. LIORESAL [Suspect]
     Indication: MUSCLE SPASTICITY
     Dosage: 129.6 UG/DAY
     Route: 037
  2. MORPHINE [Concomitant]

REACTIONS (10)
  - CHILLS [None]
  - DEVICE FAILURE [None]
  - DIARRHOEA [None]
  - DYSGEUSIA [None]
  - HYPERHIDROSIS [None]
  - LACRIMATION INCREASED [None]
  - NAUSEA [None]
  - PAIN EXACERBATED [None]
  - PAROSMIA [None]
  - YAWNING [None]
